FAERS Safety Report 9256999 (Version 1)
Quarter: 2013Q2

REPORT INFORMATION
  Report Type: Spontaneous
  Country: FR (occurrence: FR)
  Receive Date: 20130426
  Receipt Date: 20130426
  Transmission Date: 20140414
  Serious: Yes (Hospitalization, Other)
  Sender: FDA-Public Use
  Company Number: FR-ELI_LILLY_AND_COMPANY-FR201304005249

PATIENT
  Age: 45 Year
  Sex: Male

DRUGS (1)
  1. CIALIS [Suspect]
     Dosage: UNK, UNKNOWN
     Route: 048
     Dates: start: 20130216, end: 20130216

REACTIONS (4)
  - Visual acuity reduced [Recovered/Resolved]
  - Atrial septal defect [Unknown]
  - Cardiac aneurysm [Unknown]
  - Cerebral infarction [Recovered/Resolved with Sequelae]
